FAERS Safety Report 7217931-X (Version None)
Quarter: 2011Q1

REPORT INFORMATION
  Report Type: 
  Country: None (occurrence: None)
  Receive Date: 20110110
  Receipt Date: 20101222
  Transmission Date: 20110831
  Serious: Yes (Hospitalization, Congenital Anomaly)
  Sender: FDA-Public Use
  Company Number: A0680996A

PATIENT
  Sex: Male
  Weight: 2.9 kg

DRUGS (2)
  1. PAXIL CR [Suspect]
     Indication: ANXIETY
     Dosage: 25MG PER DAY
     Dates: start: 20020101, end: 20040101
  2. PRENATAL VITAMINS [Concomitant]

REACTIONS (4)
  - SUPRAVENTRICULAR TACHYCARDIA [None]
  - DRUG EXPOSURE DURING PREGNANCY [None]
  - WOLFF-PARKINSON-WHITE SYNDROME [None]
  - PATENT DUCTUS ARTERIOSUS [None]
